FAERS Safety Report 8836336 (Version 2)
Quarter: 2013Q1

REPORT INFORMATION
  Report Type: Spontaneous
  Country: US (occurrence: US)
  Receive Date: 20121011
  Receipt Date: 20130111
  Transmission Date: 20140127
  Serious: No
  Sender: FDA-Public Use
  Company Number: US-009507513-1208USA011498

PATIENT
  Sex: Female
  Weight: 54.88 kg

DRUGS (6)
  1. IMPLANON [Suspect]
     Indication: CONTRACEPTION
     Dosage: UNK
     Route: 059
     Dates: start: 20111214, end: 20120823
  2. IBUPROFEN [Concomitant]
  3. TAZORAC [Concomitant]
  4. BUSPIRONE HYDROCHLORIDE [Concomitant]
  5. TIZANIDINE HYDROCHLORIDE [Concomitant]
  6. HYOSCYAMINE [Concomitant]

REACTIONS (1)
  - Menorrhagia [Not Recovered/Not Resolved]
